FAERS Safety Report 21340812 (Version 1)
Quarter: 2022Q3

REPORT INFORMATION
  Report Type: Spontaneous
  Country: CA (occurrence: CA)
  Receive Date: 20220916
  Receipt Date: 20220916
  Transmission Date: 20221026
  Serious: Yes (Hospitalization, Other)
  Sender: FDA-Public Use
  Company Number: CA-SPECGX-T202200661

PATIENT
  Age: 39 Year
  Sex: Female

DRUGS (15)
  1. METHADOSE [Suspect]
     Active Substance: METHADONE HYDROCHLORIDE
     Indication: Drug use disorder
     Dosage: UNK
     Route: 065
  2. FENTANYL [Suspect]
     Active Substance: FENTANYL
     Indication: Product used for unknown indication
     Dosage: 1 GRAM, QD (APPROXIMATELY)
     Route: 042
  3. FENTANYL [Suspect]
     Active Substance: FENTANYL
     Dosage: UNK
     Route: 065
  4. METHAMPHETAMINE [Suspect]
     Active Substance: METHAMPHETAMINE
     Indication: Product used for unknown indication
     Dosage: DAILY SINCE 30
     Route: 065
  5. SUBOXONE [Suspect]
     Active Substance: BUPRENORPHINE HYDROCHLORIDE\NALOXONE HYDROCHLORIDE
     Indication: Drug use disorder
     Dosage: 0.5 MILLIGRAM, QD (DAY 1)
     Route: 060
     Dates: start: 2018, end: 2018
  6. SUBOXONE [Suspect]
     Active Substance: BUPRENORPHINE HYDROCHLORIDE\NALOXONE HYDROCHLORIDE
     Dosage: 0.5 MILLIGRAM, BID (DAY 2)
     Route: 060
     Dates: start: 2018, end: 2018
  7. SUBOXONE [Suspect]
     Active Substance: BUPRENORPHINE HYDROCHLORIDE\NALOXONE HYDROCHLORIDE
     Dosage: 1 MILLIGRAM, BID (DAY 3)
     Route: 060
     Dates: start: 2018, end: 2018
  8. SUBOXONE [Suspect]
     Active Substance: BUPRENORPHINE HYDROCHLORIDE\NALOXONE HYDROCHLORIDE
     Dosage: 2 MILLIGRAM, BID (DAY 4)
     Route: 060
     Dates: start: 2018, end: 2018
  9. SUBOXONE [Suspect]
     Active Substance: BUPRENORPHINE HYDROCHLORIDE\NALOXONE HYDROCHLORIDE
     Dosage: 3 MILLIGRAM, BID (DAY 5)
     Route: 060
     Dates: start: 2018, end: 2018
  10. SUBOXONE [Suspect]
     Active Substance: BUPRENORPHINE HYDROCHLORIDE\NALOXONE HYDROCHLORIDE
     Dosage: 4 MILLIGRAM, QD (DAY 6)
     Route: 060
     Dates: start: 2018, end: 2018
  11. SUBOXONE [Suspect]
     Active Substance: BUPRENORPHINE HYDROCHLORIDE\NALOXONE HYDROCHLORIDE
     Dosage: 12 MILLIGRAM, QD (DAY 7)
     Route: 060
     Dates: start: 2018, end: 2018
  12. SUBOXONE [Suspect]
     Active Substance: BUPRENORPHINE HYDROCHLORIDE\NALOXONE HYDROCHLORIDE
     Dosage: 16 TO 32 MG, ONGOING UP TITRATION
     Route: 060
     Dates: start: 2018, end: 2018
  13. MORPHINE [Suspect]
     Active Substance: MORPHINE
     Indication: Drug use disorder
     Dosage: SLOW RELEASE
     Route: 048
  14. HEROIN [Suspect]
     Active Substance: DIAMORPHINE
     Indication: Product used for unknown indication
     Dosage: UNK
     Route: 065
  15. HYDROMORPHONE [Concomitant]
     Active Substance: HYDROMORPHONE
     Indication: Drug use disorder
     Dosage: UNK
     Route: 042

REACTIONS (8)
  - Abscess neck [Unknown]
  - Drug dependence [Unknown]
  - Drug abuse [Not Recovered/Not Resolved]
  - Pain [Recovering/Resolving]
  - Drug withdrawal syndrome [Recovering/Resolving]
  - Wrong technique in product usage process [Recovered/Resolved]
  - Inappropriate schedule of product administration [Recovered/Resolved]
  - Off label use [Recovered/Resolved]

NARRATIVE: CASE EVENT DATE: 20180101
